FAERS Safety Report 6956559-3 (Version None)
Quarter: 2010Q3

REPORT INFORMATION
  Report Type: 
  Country: None (occurrence: None)
  Receive Date: 20100830
  Receipt Date: 20100819
  Transmission Date: 20110219
  Serious: Yes (Other)
  Sender: FDA-Public Use
  Company Number: US-PFIZER INC-2010098261

PATIENT
  Sex: Male
  Weight: 82 kg

DRUGS (10)
  1. CHANTIX [Suspect]
     Indication: SMOKING CESSATION THERAPY
     Dosage: 0.5 MG, 1X/DAY
     Route: 048
     Dates: start: 20100801
  2. CHANTIX [Interacting]
     Dosage: 0.5 MG, 2X/DAY
  3. XANAX [Interacting]
     Indication: ANXIETY
     Dosage: UNK
  4. PROPRANOLOL [Interacting]
     Indication: HEART RATE INCREASED
     Dosage: 3 MG, 2X/DAY
  5. ATARAX [Interacting]
     Indication: ANXIETY
     Dosage: UNK
  6. ADDERALL 10 [Concomitant]
     Indication: DEPRESSION
     Dosage: 10 MG, 2X/DAY
  7. LISINOPRIL [Concomitant]
     Indication: HYPERTENSION
     Dosage: UNK
  8. SYMBICORT [Concomitant]
     Indication: EMPHYSEMA
     Dosage: UNK
  9. COMBIVENT [Concomitant]
     Indication: EMPHYSEMA
     Dosage: UNK
  10. VITAMIN B-12 [Concomitant]
     Dosage: 1X/WEEK

REACTIONS (2)
  - DEPRESSION [None]
  - DRUG INTERACTION [None]
